FAERS Safety Report 7285417-2 (Version None)
Quarter: 2011Q1

REPORT INFORMATION
  Report Type: 
  Country: None (occurrence: None)
  Receive Date: 20110210
  Receipt Date: 20110112
  Transmission Date: 20110831
  Serious: Yes (Other)
  Sender: FDA-Public Use
  Company Number: US-ABBOTT-11P-163-0697769-00

PATIENT
  Sex: Male
  Weight: 104.42 kg

DRUGS (7)
  1. REYATAZ [Concomitant]
     Indication: HYPERTENSION
  2. TRUVADA [Concomitant]
     Indication: CHEST PAIN
  3. VIDEX [Concomitant]
     Indication: PRODUCT USED FOR UNKNOWN INDICATION
  4. BACTRIM DS [Concomitant]
     Indication: PRODUCT USED FOR UNKNOWN INDICATION
  5. NORVIR [Suspect]
     Indication: HIV INFECTION
     Route: 048
     Dates: start: 20100709, end: 20110112
  6. DIFLUCAN [Concomitant]
     Indication: PRODUCT USED FOR UNKNOWN INDICATION
  7. NORVIR [Suspect]
     Dosage: NORVIR CAPSULES

REACTIONS (1)
  - URTICARIA [None]
